FAERS Safety Report 20839550 (Version 1)
Quarter: 2022Q2

REPORT INFORMATION
  Report Type: Report from Study
  Country: US (occurrence: US)
  Receive Date: 20220517
  Receipt Date: 20220517
  Transmission Date: 20220721
  Serious: Yes (Hospitalization)
  Sender: FDA-Public Use
  Company Number: US-JNJFOC-20220523589

PATIENT
  Age: 52 Year
  Sex: Female

DRUGS (5)
  1. SPRAVATO [Suspect]
     Active Substance: ESKETAMINE
     Indication: Depression
     Dosage: 84 MG, 3 DOSES
     Dates: start: 20220104, end: 20220111
  2. SPRAVATO [Suspect]
     Active Substance: ESKETAMINE
     Dosage: 98 MG, 1 DOSE
     Dates: start: 20220113, end: 20220113
  3. SPRAVATO [Suspect]
     Active Substance: ESKETAMINE
     Dosage: 84 MG, 3 DOSES
     Dates: start: 20220125, end: 20220131
  4. SPRAVATO [Suspect]
     Active Substance: ESKETAMINE
     Dosage: 98 MG, 2 DOSES
     Dates: start: 20220202, end: 20220208
  5. SPRAVATO [Suspect]
     Active Substance: ESKETAMINE
     Dosage: RECENT DOSE
     Dates: start: 20220302, end: 20220302

REACTIONS (1)
  - Hospitalisation [Unknown]

NARRATIVE: CASE EVENT DATE: 20220101
